FAERS Safety Report 16071360 (Version 2)
Quarter: 2019Q1

REPORT INFORMATION
  Report Type: Spontaneous
  Country: US (occurrence: US)
  Receive Date: 20190314
  Receipt Date: 20190320
  Transmission Date: 20190418
  Serious: No
  Sender: FDA-Public Use
  Company Number: US-PFIZER INC-2019107654

PATIENT
  Age: 68 Year
  Sex: Female
  Weight: 70.3 kg

DRUGS (1)
  1. DILANTIN [Suspect]
     Active Substance: PHENYTOIN
     Indication: SEIZURE
     Dosage: 100 MG, 2X/DAY
     Route: 048
     Dates: start: 1992

REACTIONS (3)
  - Vertigo [Recovering/Resolving]
  - Intentional product misuse [Not Recovered/Not Resolved]
  - Drug level increased [Unknown]

NARRATIVE: CASE EVENT DATE: 201901
